FAERS Safety Report 7314759-7 (Version None)
Quarter: 2011Q1

REPORT INFORMATION
  Report Type: 
  Country: None (occurrence: None)
  Receive Date: 20110225
  Receipt Date: 20101201
  Transmission Date: 20110831
  Serious: No
  Sender: FDA-Public Use
  Company Number: US-MYLANLABS-2010S1021941

PATIENT
  Age: 47 Year
  Sex: Female

DRUGS (8)
  1. ASTEPRO [Concomitant]
  2. ALLEGRA [Concomitant]
     Indication: SEASONAL ALLERGY
  3. ADVAIR DISKUS 100/50 [Concomitant]
     Indication: ASTHMA
  4. VITAMIN D [Concomitant]
  5. TOPROL-XL [Concomitant]
     Indication: BLOOD PRESSURE INCREASED
  6. AMNESTEEM [Suspect]
     Indication: ROSACEA
     Route: 048
     Dates: start: 20100928, end: 20101115
  7. SINGULAIR [Concomitant]
     Indication: ASTHMA
  8. MAGNESIUM [Concomitant]

REACTIONS (1)
  - ALOPECIA [None]
